FAERS Safety Report 17711791 (Version 2)
Quarter: 2020Q2

REPORT INFORMATION
  Report Type: Spontaneous
  Country: CA (occurrence: CA)
  Receive Date: 20200427
  Receipt Date: 20200505
  Transmission Date: 20200714
  Serious: Yes (Death)
  Sender: FDA-Public Use
  Company Number: CA-PFIZER INC-2020167645

PATIENT
  Age: 72 Year
  Sex: Female

DRUGS (2)
  1. LETROZOLE. [Concomitant]
     Active Substance: LETROZOLE
  2. DRUG, UNSPECIFIED [Suspect]
     Active Substance: UNSPECIFIED INGREDIENT
     Dosage: NO DOSE GIVEN

REACTIONS (1)
  - Death [Fatal]
